FAERS Safety Report 16586218 (Version 1)
Quarter: 2019Q3

REPORT INFORMATION
  Report Type: Report from Study
  Country: US (occurrence: US)
  Receive Date: 20190717
  Receipt Date: 20190717
  Transmission Date: 20191004
  Serious: Yes (Hospitalization, Other)
  Sender: FDA-Public Use
  Company Number: US-PFIZER INC-2019167720

PATIENT
  Age: 62 Year
  Sex: Male

DRUGS (1)
  1. SUTENT [Suspect]
     Active Substance: SUNITINIB MALATE
     Indication: RENAL CANCER
     Dosage: 50 MG, CYCLIC (DAILY, 4 WEEKS ON AND 2 WEEKS OFF)
     Route: 048
     Dates: start: 20190410

REACTIONS (12)
  - Dizziness [Unknown]
  - Chills [Unknown]
  - Pain of skin [Unknown]
  - Diarrhoea [Recovered/Resolved]
  - Pyrexia [Unknown]
  - Alopecia [Not Recovered/Not Resolved]
  - Skin discolouration [Unknown]
  - Asthenia [Unknown]
  - Hypertension [Not Recovered/Not Resolved]
  - Dehydration [Unknown]
  - Constipation [Recovered/Resolved]
  - Vision blurred [Unknown]

NARRATIVE: CASE EVENT DATE: 2019
